FAERS Safety Report 4916219-7 (Version None)
Quarter: 2006Q1

REPORT INFORMATION
  Report Type: 
  Country: None (occurrence: None)
  Receive Date: 20060217
  Receipt Date: 20050414
  Transmission Date: 20060701
  Serious: Yes (Hospitalization)
  Sender: FDA-Public Use
  Company Number: US-MERCK-0504USA02774

PATIENT
  Sex: Male
  Weight: 82 kg

DRUGS (1)
  1. VIOXX [Suspect]
     Indication: ARTHRITIS
     Route: 048
     Dates: start: 19990101, end: 20010101

REACTIONS (14)
  - ANGINA PECTORIS [None]
  - CHEST PAIN [None]
  - COUGH [None]
  - HAEMORRHAGE [None]
  - HEPATIC ENZYME INCREASED [None]
  - HEPATIC FUNCTION ABNORMAL [None]
  - INFLUENZA [None]
  - LIMB INJURY [None]
  - PALPITATIONS [None]
  - PRESCRIBED OVERDOSE [None]
  - RASH [None]
  - STOMACH DISCOMFORT [None]
  - THROMBOSIS [None]
  - WOUND [None]
